FAERS Safety Report 5931107-5 (Version None)
Quarter: 2008Q4

REPORT INFORMATION
  Report Type: 
  Country: None (occurrence: None)
  Receive Date: 20081027
  Receipt Date: 20081015
  Transmission Date: 20090506
  Serious: Yes (Hospitalization)
  Sender: FDA-Public Use
  Company Number: PHHY2008JP25148

PATIENT
  Sex: Male

DRUGS (3)
  1. MIKELAN LA 2% (NVO) [Suspect]
     Dosage: 1 GTT OU, QAM
     Route: 047
     Dates: start: 20080716, end: 20080910
  2. MIKELAN LA 2% (NVO) [Suspect]
     Dosage: 1 GTT OU, QAM
     Route: 047
     Dates: start: 20080911
  3. DIOVAN [Concomitant]

REACTIONS (3)
  - CEREBRAL INFARCTION [None]
  - GLUCOSE URINE PRESENT [None]
  - HYPOAESTHESIA [None]
